FAERS Safety Report 9547374 (Version 1)
Quarter: 2013Q3

REPORT INFORMATION
  Report Type: Report from Study
  Country: DE (occurrence: DE)
  Receive Date: 20130924
  Receipt Date: 20130924
  Transmission Date: 20140515
  Serious: Yes (Hospitalization)
  Sender: FDA-Public Use
  Company Number: DE-ABBVIE-13P-062-1148765-00

PATIENT
  Age: 48 Year
  Sex: Male
  Weight: 65 kg

DRUGS (4)
  1. HUMIRA [Suspect]
     Indication: PSORIASIS
     Route: 058
     Dates: start: 20110408, end: 201205
  2. HUMIRA [Suspect]
     Route: 058
     Dates: start: 201304
  3. ANTIDIURETICS [Concomitant]
     Indication: PRODUCT USED FOR UNKNOWN INDICATION
  4. INSULINE [Concomitant]
     Indication: TYPE 2 DIABETES MELLITUS

REACTIONS (1)
  - Intervertebral disc protrusion [Unknown]
